FAERS Safety Report 14841103 (Version 2)
Quarter: 2018Q2

REPORT INFORMATION
  Report Type: Spontaneous
  Country: US (occurrence: US)
  Receive Date: 20180503
  Receipt Date: 20180607
  Transmission Date: 20180711
  Serious: Yes (Other)
  Sender: FDA-Public Use
  Company Number: US-SUNOVION-2018SUN001695

PATIENT
  Age: 58 Year
  Sex: Male
  Weight: 86.17 kg

DRUGS (2)
  1. LATUDA [Suspect]
     Active Substance: LURASIDONE HYDROCHLORIDE
     Indication: BIPOLAR DISORDER
     Dosage: 120 MG, UNK
     Route: 048
     Dates: start: 20170816, end: 20180516
  2. TEGRETOL [Interacting]
     Active Substance: CARBAMAZEPINE
     Dosage: UNK

REACTIONS (2)
  - Drug interaction [Unknown]
  - Suicidal ideation [Recovered/Resolved]

NARRATIVE: CASE EVENT DATE: 20180410
